FAERS Safety Report 17396258 (Version 3)
Quarter: 2021Q1

REPORT INFORMATION
  Report Type: Report from Study
  Country: GB (occurrence: GB)
  Receive Date: 20200210
  Receipt Date: 20210122
  Transmission Date: 20210419
  Serious: Yes (Hospitalization)
  Sender: FDA-Public Use
  Company Number: GB-CELGENEUS-GBR-20200200369

PATIENT
  Age: 74 Year
  Sex: Male
  Weight: 99.2 kg

DRUGS (6)
  1. AMLODIPINE [Concomitant]
     Active Substance: AMLODIPINE BESYLATE
     Indication: HYPERTENSION
     Dosage: 5 MILLIGRAM
     Route: 048
     Dates: start: 20190805
  2. GEMCITABINE. [Suspect]
     Active Substance: GEMCITABINE
     Route: 041
     Dates: start: 20200117, end: 20200117
  3. BISOPROLOL [Concomitant]
     Active Substance: BISOPROLOL
     Indication: HYPERTENSION
     Dosage: 5 MILLIGRAM
     Route: 048
     Dates: start: 20190808
  4. ABRAXANE [Suspect]
     Active Substance: PACLITAXEL
     Indication: PANCREATIC CARCINOMA
     Route: 041
     Dates: start: 20191025, end: 20200117
  5. GEMCITABINE. [Suspect]
     Active Substance: GEMCITABINE
     Indication: PANCREATIC CARCINOMA
     Route: 041
     Dates: start: 20191025, end: 20200117
  6. CITALOPRAM [Concomitant]
     Active Substance: CITALOPRAM HYDROBROMIDE
     Indication: DEPRESSION
     Dosage: 20 MILLIGRAM
     Route: 048
     Dates: start: 20190905

REACTIONS (1)
  - Malaise [Recovered/Resolved]

NARRATIVE: CASE EVENT DATE: 20200202
